FAERS Safety Report 18554425 (Version 2)
Quarter: 2020Q4

REPORT INFORMATION
  Report Type: Report from Study
  Country: AR (occurrence: AR)
  Receive Date: 20201127
  Receipt Date: 20201208
  Transmission Date: 20210114
  Serious: Yes (Other)
  Sender: FDA-Public Use
  Company Number: NVSC2020AR311440

PATIENT
  Age: 22 Year
  Sex: Male

DRUGS (1)
  1. GILENYA [Suspect]
     Active Substance: FINGOLIMOD HYDROCHLORIDE
     Indication: PRODUCT USED FOR UNKNOWN INDICATION
     Dosage: 0.5 MG, QD
     Route: 048
     Dates: start: 20160119, end: 20200831

REACTIONS (13)
  - Muscle spasms [Unknown]
  - Peripheral coldness [Unknown]
  - Somnolence [Unknown]
  - Condition aggravated [Unknown]
  - Hypothermia [Unknown]
  - Central nervous system lesion [Unknown]
  - Tremor [Unknown]
  - Spinal cord disorder [Unknown]
  - Hypoaesthesia [Unknown]
  - Hot flush [Unknown]
  - Temperature intolerance [Recovered/Resolved]
  - Fatigue [Unknown]
  - Diarrhoea [Unknown]

NARRATIVE: CASE EVENT DATE: 202006
